FAERS Safety Report 7460651-7 (Version None)
Quarter: 2011Q2

REPORT INFORMATION
  Report Type: 
  Country: None (occurrence: None)
  Receive Date: 20110427
  Receipt Date: 20110426
  Transmission Date: 20111010
  Serious: Yes (Death, Hospitalization)
  Sender: FDA-Public Use
  Company Number: AE-411-127

PATIENT
  Age: 40 Year
  Sex: Male

DRUGS (2)
  1. LIDODERM [Suspect]
     Indication: INTERVERTEBRAL DISC DISORDER
     Dosage: 1 TO 12 PATCHES OVER 12 HOURS
     Dates: start: 20040101
  2. PERCOCET [Suspect]
     Dosage: THREE TIMES A DAY

REACTIONS (4)
  - INCORRECT DRUG ADMINISTRATION DURATION [None]
  - ACCIDENT [None]
  - HYPOTHERMIA [None]
  - DRUG SCREEN POSITIVE [None]
